FAERS Safety Report 8505914-9 (Version None)
Quarter: 2012Q3

REPORT INFORMATION
  Report Type: 
  Country: None (occurrence: None)
  Receive Date: 20120712
  Receipt Date: 20120705
  Transmission Date: 20120928
  Serious: Yes (Other)
  Sender: FDA-Public Use
  Company Number: SE-PFIZER INC-2012165099

PATIENT
  Age: 59 Year
  Sex: Female

DRUGS (2)
  1. RAMIPRIL [Suspect]
     Indication: HYPERTENSION
     Dosage: 5 MG, DAILY
     Route: 048
     Dates: start: 20110617, end: 20120412
  2. GEMFIBROZIL [Suspect]
     Indication: HYPERCHOLESTEROLAEMIA
     Dosage: 800 MG, DAILY
     Route: 048
     Dates: start: 20120305, end: 20120408

REACTIONS (4)
  - MUSCULOSKELETAL STIFFNESS [None]
  - ANGIOEDEMA [None]
  - MYOSITIS [None]
  - RASH ERYTHEMATOUS [None]
